FAERS Safety Report 13302654 (Version 1)
Quarter: 2017Q1

REPORT INFORMATION
  Report Type: Report from Study
  Country: ZA (occurrence: ZA)
  Receive Date: 20170307
  Receipt Date: 20170307
  Transmission Date: 20170428
  Serious: Yes (Hospitalization)
  Sender: FDA-Public Use
  Company Number: PHHY2017ZA034018

PATIENT
  Sex: Female

DRUGS (4)
  1. BROMAZEPAM SANDOZ [Suspect]
     Active Substance: BROMAZEPAM
     Indication: STRESS
     Dosage: 3 MG, QN
     Route: 048
     Dates: start: 20160908
  2. ECOTRIN [Suspect]
     Active Substance: ASPIRIN
     Indication: ANTICOAGULANT THERAPY
     Dosage: 81 MG, UNK
     Route: 048
     Dates: start: 20160908
  3. VALSARTAN. [Suspect]
     Active Substance: VALSARTAN
     Indication: HYPERTENSION
     Dosage: 160 MG, UNK
     Route: 048
     Dates: start: 20160908
  4. XALATAN [Suspect]
     Active Substance: LATANOPROST
     Indication: GLAUCOMA
     Dosage: 50 UG, UNK
     Route: 048
     Dates: start: 20160908

REACTIONS (1)
  - Eye disorder [Unknown]
